FAERS Safety Report 19990820 (Version 4)
Quarter: 2023Q2

REPORT INFORMATION
  Report Type: Report from Study
  Country: GB (occurrence: GB)
  Receive Date: 20211025
  Receipt Date: 20230607
  Transmission Date: 20230722
  Serious: Yes (Other)
  Sender: FDA-Public Use
  Company Number: GB-CELLTRION INC.-2021GB011733

PATIENT

DRUGS (71)
  1. TRASTUZUMAB [Suspect]
     Active Substance: TRASTUZUMAB
     Indication: Breast cancer
     Dosage: 600 MG, EVERY 3 WEEKS (DOSE FORM: 231, CUMULATIVE DOSE: 44341.668 MG)
     Route: 058
     Dates: start: 20170324, end: 20210305
  2. TRASTUZUMAB [Suspect]
     Active Substance: TRASTUZUMAB
     Dosage: 600 MG, EVERY 3 WEEKS (DOSE FORM: 231, CUMULATIVE DOSE: 44341.668 MG)
     Route: 058
     Dates: start: 20170324, end: 20210305
  3. TRASTUZUMAB [Suspect]
     Active Substance: TRASTUZUMAB
     Dosage: 600 MG, EVERY 3 WEEKS (DOSE FORM: 231, CUMULATIVE DOSE: 342.85715 MG)
     Route: 058
     Dates: start: 20210611, end: 20210611
  4. TRASTUZUMAB [Suspect]
     Active Substance: TRASTUZUMAB
     Dosage: 600 MG, EVERY 3 WEEKS (DOSE FORM: 231, CUMULATIVE DOSE: 342.85715 MG)
     Route: 058
     Dates: start: 20210611, end: 20210611
  5. TRASTUZUMAB [Suspect]
     Active Substance: TRASTUZUMAB
     Indication: Breast cancer
     Dosage: 600 MG, EVERY 3 WEEKS (DOSE FORM: 231, CUMULATIVE DOSE: 44341.668 MG)
     Route: 058
     Dates: start: 20170324, end: 20210305
  6. TRASTUZUMAB [Suspect]
     Active Substance: TRASTUZUMAB
     Dosage: 600 MG, EVERY 3 WEEKS (DOSE FORM: 231, CUMULATIVE DOSE: 44341.668 MG)
     Route: 058
     Dates: start: 20170324, end: 20210305
  7. TRASTUZUMAB [Suspect]
     Active Substance: TRASTUZUMAB
     Dosage: 600 MG, EVERY 3 WEEKS (DOSE FORM: 231, CUMULATIVE DOSE: 342.85715 MG)
     Route: 058
     Dates: start: 20210611, end: 20210611
  8. TRASTUZUMAB [Suspect]
     Active Substance: TRASTUZUMAB
     Dosage: 600 MG, EVERY 3 WEEKS (DOSE FORM: 231, CUMULATIVE DOSE: 342.85715 MG)
     Route: 058
     Dates: start: 20210611, end: 20210611
  9. DOCETAXEL [Suspect]
     Active Substance: DOCETAXEL
     Indication: Breast cancer
     Dosage: 200 MG, EVERY 3 WEEKS (CUMULATIVE DOSE: 14780.556 MG)
     Route: 042
     Dates: start: 20170324, end: 20170620
  10. DOCETAXEL [Suspect]
     Active Substance: DOCETAXEL
     Dosage: 200 MG, EVERY 3 WEEKS (CUMULATIVE DOSE: 14780.556 MG)
     Route: 042
     Dates: start: 20170324, end: 20170620
  11. DOCETAXEL [Suspect]
     Active Substance: DOCETAXEL
     Dosage: 200 MG, EVERY 3 WEEKS (CUMULATIVE DOSE: 14780.556 MG)
     Route: 042
     Dates: start: 20170324, end: 20170620
  12. DOCETAXEL [Suspect]
     Active Substance: DOCETAXEL
     Dosage: 200 MG, EVERY 3 WEEKS (CUMULATIVE DOSE: 14780.556 MG)
     Route: 042
     Dates: start: 20170324, end: 20170620
  13. DOCETAXEL [Suspect]
     Active Substance: DOCETAXEL
     Dosage: 200 MG, EVERY 3 WEEKS (CUMULATIVE DOSE: 14780.556 MG)
     Route: 042
     Dates: start: 20170324, end: 20170620
  14. DOCETAXEL [Suspect]
     Active Substance: DOCETAXEL
     Dosage: 180 MG, EVERY 3 WEEKS (CUMULATIVE DOSE: 12540.0 MG)
     Route: 042
     Dates: start: 20170621, end: 20170711
  15. DOCETAXEL [Suspect]
     Active Substance: DOCETAXEL
     Dosage: 180 MG, EVERY 3 WEEKS (CUMULATIVE DOSE: 12540.0 MG)
     Route: 042
     Dates: start: 20170621, end: 20170711
  16. DOCETAXEL [Suspect]
     Active Substance: DOCETAXEL
     Dosage: 180 MG, EVERY 3 WEEKS (CUMULATIVE DOSE: 12540.0 MG)
     Route: 042
     Dates: start: 20170621, end: 20170711
  17. DOCETAXEL [Suspect]
     Active Substance: DOCETAXEL
     Dosage: 180 MG, EVERY 3 WEEKS (CUMULATIVE DOSE: 12540.0 MG)
     Route: 042
     Dates: start: 20170621, end: 20170711
  18. DOCETAXEL [Suspect]
     Active Substance: DOCETAXEL
     Dosage: 180 MG, EVERY 3 WEEKS (CUMULATIVE DOSE: 12540.0 MG)
     Route: 042
     Dates: start: 20170621, end: 20170711
  19. DOCETAXEL [Suspect]
     Active Substance: DOCETAXEL
     Dosage: 150 MG
     Route: 042
     Dates: start: 20170712, end: 20170712
  20. DOCETAXEL [Suspect]
     Active Substance: DOCETAXEL
     Dosage: 150 MG
     Route: 042
     Dates: start: 20170712, end: 20170712
  21. DOCETAXEL [Suspect]
     Active Substance: DOCETAXEL
     Dosage: 150 MG
     Route: 042
     Dates: start: 20170712, end: 20170712
  22. DOCETAXEL [Suspect]
     Active Substance: DOCETAXEL
     Dosage: 150 MG
     Route: 042
     Dates: start: 20170712, end: 20170712
  23. DOCETAXEL [Suspect]
     Active Substance: DOCETAXEL
     Dosage: 150 MG
     Route: 042
     Dates: start: 20170712, end: 20170712
  24. DOCETAXEL [Suspect]
     Active Substance: DOCETAXEL
     Dosage: 200 MG, EVERY 3 WEEKS (CUMULATIVE DOSE: 14780.556 MG)
     Route: 042
     Dates: start: 20170324, end: 20170620
  25. DOCETAXEL [Suspect]
     Active Substance: DOCETAXEL
     Dosage: 200 MG, EVERY 3 WEEKS (CUMULATIVE DOSE: 14780.556 MG)
     Route: 042
     Dates: start: 20170324, end: 20170620
  26. DOCETAXEL [Suspect]
     Active Substance: DOCETAXEL
     Dosage: 200 MG, EVERY 3 WEEKS (CUMULATIVE DOSE: 14780.556 MG)
     Route: 042
     Dates: start: 20170324, end: 20170620
  27. DOCETAXEL [Suspect]
     Active Substance: DOCETAXEL
     Dosage: 200 MG, EVERY 3 WEEKS (CUMULATIVE DOSE: 14780.556 MG)
     Route: 042
     Dates: start: 20170324, end: 20170620
  28. DOCETAXEL [Suspect]
     Active Substance: DOCETAXEL
     Dosage: 200 MG, EVERY 3 WEEKS (CUMULATIVE DOSE: 14780.556 MG)
     Route: 042
     Dates: start: 20170324, end: 20170620
  29. DOCETAXEL [Suspect]
     Active Substance: DOCETAXEL
     Dosage: 200 MG, EVERY 3 WEEKS (CUMULATIVE DOSE: 14780.556 MG)
     Route: 042
     Dates: start: 20170324, end: 20170620
  30. DOCETAXEL [Suspect]
     Active Substance: DOCETAXEL
     Dosage: 200 MG, EVERY 3 WEEKS (CUMULATIVE DOSE: 14780.556 MG)
     Route: 042
     Dates: start: 20170324, end: 20170620
  31. DOCETAXEL [Suspect]
     Active Substance: DOCETAXEL
     Dosage: 200 MG, EVERY 3 WEEKS (CUMULATIVE DOSE: 14780.556 MG)
     Route: 042
     Dates: start: 20170324, end: 20170620
  32. DOCETAXEL [Suspect]
     Active Substance: DOCETAXEL
     Dosage: 200 MG, EVERY 3 WEEKS (CUMULATIVE DOSE: 14780.556 MG)
     Route: 042
     Dates: start: 20170324, end: 20170620
  33. DOCETAXEL [Suspect]
     Active Substance: DOCETAXEL
     Dosage: 200 MG, EVERY 3 WEEKS (CUMULATIVE DOSE: 14780.556 MG)
     Route: 042
     Dates: start: 20170324, end: 20170620
  34. DOCETAXEL [Suspect]
     Active Substance: DOCETAXEL
     Dosage: 200 MG, EVERY 3 WEEKS (CUMULATIVE DOSE: 14780.556 MG)
     Route: 042
     Dates: start: 20170324, end: 20170620
  35. DOCETAXEL [Suspect]
     Active Substance: DOCETAXEL
     Dosage: 200 MG, EVERY 3 WEEKS (CUMULATIVE DOSE: 14780.556 MG)
     Route: 042
     Dates: start: 20170324, end: 20170620
  36. DOCETAXEL [Suspect]
     Active Substance: DOCETAXEL
     Dosage: 200 MG, EVERY 3 WEEKS (CUMULATIVE DOSE: 14780.556 MG)
     Route: 042
     Dates: start: 20170324, end: 20170620
  37. DOCETAXEL [Suspect]
     Active Substance: DOCETAXEL
     Dosage: 200 MG, EVERY 3 WEEKS (CUMULATIVE DOSE: 14780.556 MG)
     Route: 042
     Dates: start: 20170324, end: 20170620
  38. DOCETAXEL [Suspect]
     Active Substance: DOCETAXEL
     Dosage: 200 MG, EVERY 3 WEEKS (CUMULATIVE DOSE: 14780.556 MG)
     Route: 042
     Dates: start: 20170324, end: 20170620
  39. DOCETAXEL [Suspect]
     Active Substance: DOCETAXEL
     Dosage: 200 MG, EVERY 3 WEEKS (CUMULATIVE DOSE: 14780.556 MG)
     Route: 042
     Dates: start: 20170324, end: 20170620
  40. DOCETAXEL [Suspect]
     Active Substance: DOCETAXEL
     Dosage: 200 MG, EVERY 3 WEEKS (CUMULATIVE DOSE: 14780.556 MG)
     Route: 042
     Dates: start: 20170324, end: 20170620
  41. DOCETAXEL [Suspect]
     Active Substance: DOCETAXEL
     Dosage: 200 MG, EVERY 3 WEEKS (CUMULATIVE DOSE: 14780.556 MG)
     Route: 042
     Dates: start: 20170324, end: 20170620
  42. DOCETAXEL [Suspect]
     Active Substance: DOCETAXEL
     Dosage: 200 MG, EVERY 3 WEEKS (CUMULATIVE DOSE: 14780.556 MG)
     Route: 042
     Dates: start: 20170324, end: 20170620
  43. DOCETAXEL [Suspect]
     Active Substance: DOCETAXEL
     Dosage: 200 MG, EVERY 3 WEEKS (CUMULATIVE DOSE: 14780.556 MG)
     Route: 042
     Dates: start: 20170324, end: 20170620
  44. DOCETAXEL [Suspect]
     Active Substance: DOCETAXEL
     Dosage: 200 MG, EVERY 3 WEEKS (CUMULATIVE DOSE: 14780.556 MG)
     Route: 042
     Dates: start: 20170324, end: 20170620
  45. DOCETAXEL [Suspect]
     Active Substance: DOCETAXEL
     Dosage: 200 MG, EVERY 3 WEEKS (CUMULATIVE DOSE: 14780.556 MG)
     Route: 042
     Dates: start: 20170324, end: 20170620
  46. DOCETAXEL [Suspect]
     Active Substance: DOCETAXEL
     Dosage: 200 MG, EVERY 3 WEEKS (CUMULATIVE DOSE: 14780.556 MG)
     Route: 042
     Dates: start: 20170324, end: 20170620
  47. DOCETAXEL [Suspect]
     Active Substance: DOCETAXEL
     Dosage: 200 MG, EVERY 3 WEEKS (CUMULATIVE DOSE: 14780.556 MG)
     Route: 042
     Dates: start: 20170324, end: 20170620
  48. DOCETAXEL [Suspect]
     Active Substance: DOCETAXEL
     Dosage: 200 MG, EVERY 3 WEEKS (CUMULATIVE DOSE: 14780.556 MG)
     Route: 042
     Dates: start: 20170324, end: 20170620
  49. TAMOXIFEN [Suspect]
     Active Substance: TAMOXIFEN
     Indication: Breast cancer
     Dosage: 20 MG EVERY 1 DAY (CUMULATIVE DOSE: 27980.0 MG)
     Route: 048
     Dates: start: 20170824
  50. ADCAL [Concomitant]
     Dosage: DOSE FORM: 245
     Route: 048
     Dates: start: 20180801
  51. AMOXICILLIN [Concomitant]
     Active Substance: AMOXICILLIN
     Dosage: UNK
     Route: 065
     Dates: start: 20190314, end: 20190328
  52. BENZYDAMINE [Concomitant]
     Active Substance: BENZYDAMINE
     Dosage: 10 ML
     Route: 061
     Dates: start: 20170530, end: 20170802
  53. COD LIVER OIL [Concomitant]
     Active Substance: COD LIVER OIL
     Dosage: 1 UNK, QD (DOSE FORM: 245)
     Route: 048
     Dates: start: 20171022
  54. DEXAMETHASONE [Concomitant]
     Active Substance: DEXAMETHASONE
     Dosage: 8 MG (DOSE FORM: 245)
     Route: 048
     Dates: start: 20170323, end: 20170622
  55. DEXAMETHASONE [Concomitant]
     Active Substance: DEXAMETHASONE
     Dosage: 2 MG (DOSE FORM: 245)
     Route: 048
     Dates: start: 20170324, end: 20170716
  56. DEXAMETHASONE [Concomitant]
     Active Substance: DEXAMETHASONE
     Dosage: 4 MG (DOSE FORM: 245)
     Route: 048
     Dates: start: 20170324, end: 20170715
  57. DOMPERIDONE [Concomitant]
     Active Substance: DOMPERIDONE
     Dosage: 30 MG, EVERY 1 DAY (CUMULATIVE DOSE: 31710.0 MG)
     Route: 048
     Dates: start: 20180801, end: 201901
  58. FILGRASTIM [Concomitant]
     Active Substance: FILGRASTIM
     Dosage: UNK
     Route: 058
     Dates: start: 20170324, end: 20170719
  59. FLUCONAZOLE [Concomitant]
     Active Substance: FLUCONAZOLE
     Dosage: 50 MG EVERY 1 DAY (CUMULATIVE DOSE: 74250.0 MG)
     Route: 048
     Dates: start: 20170530, end: 20170620
  60. GELCLAIR [Concomitant]
     Dosage: DOSE: 3, EVERY 1 DAY
     Route: 048
     Dates: start: 20170414, end: 201707
  61. LOPERAMIDE [Concomitant]
     Active Substance: LOPERAMIDE
     Indication: Diarrhoea
     Dosage: 1, AS NECESSARY
     Route: 048
     Dates: start: 20170414, end: 202102
  62. OMEPRAZOLE [Concomitant]
     Active Substance: OMEPRAZOLE
  63. ONDANSETRON [Concomitant]
     Active Substance: ONDANSETRON
     Dosage: 8 MG, 3/WEEK (CUMULATIVE DOSE: 591.2222MG)
     Route: 065
     Dates: start: 20170324, end: 20170721
  64. ACETAMINOPHEN [Concomitant]
     Active Substance: ACETAMINOPHEN
     Dosage: 1 G
     Route: 048
     Dates: start: 20171011
  65. PFIZER-BIONTECH COVID-19 VACCINE [Concomitant]
     Active Substance: TOZINAMERAN
     Dosage: UNK
     Route: 065
     Dates: start: 20210417, end: 20210417
  66. PFIZER-BIONTECH COVID-19 VACCINE [Concomitant]
     Active Substance: TOZINAMERAN
     Dosage: UNK
     Route: 065
     Dates: start: 20210206, end: 20210206
  67. PROCHLORPERAZINE [Concomitant]
     Active Substance: PROCHLORPERAZINE
     Dosage: 5 MG, 1 PRN
     Route: 048
     Dates: start: 20190129, end: 202102
  68. SERTRALINE [Concomitant]
     Active Substance: SERTRALINE HYDROCHLORIDE
     Dosage: 50 MG, EVERY 1 DAY (DOSE FORM: 245)
     Route: 048
  69. TRIMETHOPRIM [Concomitant]
     Active Substance: TRIMETHOPRIM
     Dosage: 400 MG, EVERY 1 DAY (CUMULATIVE DOSE: 132800.0 MG)
     Route: 048
     Dates: start: 20200726, end: 20200901
  70. TRIMETHOPRIM [Concomitant]
     Active Substance: TRIMETHOPRIM
     Dosage: 200 MG
     Route: 048
     Dates: start: 20200723, end: 20200726
  71. MINERAL OIL [Concomitant]
     Active Substance: MINERAL OIL
     Dosage: 1 UNK, 1 PRN
     Route: 061
     Dates: start: 20170906, end: 201712

REACTIONS (2)
  - Fatigue [Recovering/Resolving]
  - Intentional product use issue [Unknown]

NARRATIVE: CASE EVENT DATE: 20210623
